FAERS Safety Report 5818866-7 (Version None)
Quarter: 2008Q3

REPORT INFORMATION
  Report Type: 
  Country: None (occurrence: None)
  Receive Date: 20080723
  Receipt Date: 20080721
  Transmission Date: 20090109
  Serious: Yes (Death)
  Sender: FDA-Public Use
  Company Number: TR-BRISTOL-MYERS SQUIBB COMPANY-14269468

PATIENT
  Age: 21 Year
  Sex: Male

DRUGS (1)
  1. VINCRISTINE SULFATE [Suspect]
     Indication: NON-HODGKIN'S LYMPHOMA
     Dosage: INDUCTION DOSE
     Route: 042

REACTIONS (4)
  - ARRHYTHMIA [None]
  - CRANIAL NEUROPATHY [None]
  - NEUROPATHY PERIPHERAL [None]
  - PNEUMONIA [None]
